FAERS Safety Report 25976710 (Version 1)
Quarter: 2025Q4

REPORT INFORMATION
  Report Type: Report from Study
  Country: US (occurrence: US)
  Receive Date: 20251029
  Receipt Date: 20251029
  Transmission Date: 20260117
  Serious: No
  Sender: SANDOZ
  Company Number: US-SANDOZ-SDZ2025US058020

PATIENT
  Sex: Female

DRUGS (4)
  1. OMNITROPE [Suspect]
     Active Substance: SOMATROPIN
     Indication: Short stature
     Dosage: 0.9 MG, QD; (STRENGTH: 10 MG / 1.5 ML)
     Route: 058
     Dates: start: 20250808
  2. OMNITROPE [Suspect]
     Active Substance: SOMATROPIN
     Indication: Short stature
     Dosage: 0.9 MG, QD; (STRENGTH: 10 MG / 1.5 ML)
     Route: 058
     Dates: start: 20250808
  3. OMNITROPE [Suspect]
     Active Substance: SOMATROPIN
     Indication: Growth hormone deficiency
     Dosage: UNK (OMNITROPE 10 MG)
     Route: 065
  4. OMNITROPE [Suspect]
     Active Substance: SOMATROPIN
     Indication: Growth hormone deficiency
     Dosage: UNK (OMNITROPE 10 MG)
     Route: 065

REACTIONS (13)
  - Epistaxis [Unknown]
  - Anxiety [Unknown]
  - Crying [Unknown]
  - Middle insomnia [Unknown]
  - Hunger [Unknown]
  - Nervousness [Unknown]
  - Contusion [Recovering/Resolving]
  - Headache [Recovered/Resolved]
  - Injection site haemorrhage [Not Recovered/Not Resolved]
  - Injection site pain [Not Recovered/Not Resolved]
  - Device dispensing error [Unknown]
  - Drug administered in wrong device [Unknown]
  - Product storage error [Unknown]

NARRATIVE: CASE EVENT DATE: 20250101
